FAERS Safety Report 12689726 (Version 3)
Quarter: 2016Q3

REPORT INFORMATION
  Report Type: Report from Study
  Country: US (occurrence: US)
  Receive Date: 20160826
  Receipt Date: 20160930
  Transmission Date: 20161109
  Serious: Yes (Other)
  Sender: FDA-Public Use
  Company Number: US-GILEAD-2016-0224907

PATIENT
  Age: 41 Year
  Sex: Female

DRUGS (3)
  1. ADCIRCA [Suspect]
     Active Substance: TADALAFIL
     Indication: PRODUCT USED FOR UNKNOWN INDICATION
     Route: 065
  2. AMBRISENTAN [Suspect]
     Active Substance: AMBRISENTAN
     Indication: PRODUCT USED FOR UNKNOWN INDICATION
     Dosage: 5 MG, QD
     Route: 065
     Dates: start: 20160624
  3. XARELTO [Concomitant]
     Active Substance: RIVAROXABAN

REACTIONS (21)
  - Lacrimation increased [Not Recovered/Not Resolved]
  - Nasal ulcer [Unknown]
  - Cardiac failure [Unknown]
  - Anger [Unknown]
  - Menorrhagia [Unknown]
  - Sinus congestion [Not Recovered/Not Resolved]
  - Sinus disorder [Unknown]
  - Epistaxis [Not Recovered/Not Resolved]
  - Oedema peripheral [Not Recovered/Not Resolved]
  - Localised oedema [Not Recovered/Not Resolved]
  - Fluid retention [Unknown]
  - Sleep disorder [Unknown]
  - Migraine [Not Recovered/Not Resolved]
  - Eye disorder [Not Recovered/Not Resolved]
  - Polymenorrhoea [Unknown]
  - Vomiting [Unknown]
  - Dyspnoea [Not Recovered/Not Resolved]
  - Pain [Unknown]
  - Intentional product use issue [Unknown]
  - Chest pain [Not Recovered/Not Resolved]
  - Dysmenorrhoea [Unknown]
